FAERS Safety Report 15326332 (Version 1)
Quarter: 2018Q3

REPORT INFORMATION
  Report Type: Report from Study
  Country: US (occurrence: US)
  Receive Date: 20180828
  Receipt Date: 20180828
  Transmission Date: 20181010
  Serious: No
  Sender: FDA-Public Use
  Company Number: US-SA-2015SA165858

PATIENT
  Age: 30 Year
  Sex: Female
  Weight: 104.78 kg

DRUGS (3)
  1. ALEMTUZUMAB [Suspect]
     Active Substance: ALEMTUZUMAB
     Dosage: INTENDED DOSE 36 MG
     Route: 041
     Dates: start: 20090404, end: 20090406
  2. ALEMTUZUMAB [Suspect]
     Active Substance: ALEMTUZUMAB
     Indication: MULTIPLE SCLEROSIS
     Dosage: INTENDED DOSE 60 MG
     Route: 041
     Dates: start: 20080505, end: 20080509
  3. ALEMTUZUMAB [Suspect]
     Active Substance: ALEMTUZUMAB
     Dosage: INTENDED DOSE 36 MG
     Route: 041
     Dates: start: 20150504, end: 20150506

REACTIONS (3)
  - Basedow^s disease [Recovered/Resolved]
  - Basedow^s disease [Recovered/Resolved with Sequelae]
  - Autoimmune hypothyroidism [Not Recovered/Not Resolved]

NARRATIVE: CASE EVENT DATE: 201107
